FAERS Safety Report 16564224 (Version 1)
Quarter: 2019Q3

REPORT INFORMATION
  Report Type: Spontaneous
  Country: GB (occurrence: GB)
  Receive Date: 20190712
  Receipt Date: 20190712
  Transmission Date: 20191004
  Serious: Yes (Disabling)
  Sender: FDA-Public Use
  Company Number: GB-TEVA-2019-GB-1075643

PATIENT
  Age: 74 Year
  Sex: Male
  Weight: 70 kg

DRUGS (20)
  1. FORCEVAL [Concomitant]
     Active Substance: FOLIC ACID\IRON\MINERALS\VITAMINS
     Dates: start: 20190523, end: 20190607
  2. SILDENAFIL. [Concomitant]
     Active Substance: SILDENAFIL
     Dates: start: 20180813
  3. TESTOGEL [Concomitant]
     Active Substance: TESTOSTERONE
     Dosage: APPLY
     Dates: start: 20180816
  4. PREDNISOLONE. [Concomitant]
     Active Substance: PREDNISOLONE
     Dosage: TAKE AS PER REDUCING DOSE
     Dates: start: 20180813
  5. ALLOPURINOL. [Concomitant]
     Active Substance: ALLOPURINOL
     Dates: start: 20180813
  6. APIXABAN [Concomitant]
     Active Substance: APIXABAN
     Dosage: REVIEW DOSE AFTER FIRST
     Dates: start: 20190222, end: 20190523
  7. MAGNASPARTATE [Concomitant]
     Dosage: SACHET AS DIRECTED
     Dates: start: 20180813
  8. LEVOTHYROXINE. [Concomitant]
     Active Substance: LEVOTHYROXINE
     Dates: start: 20180813
  9. COLESEVELAM HYDROCHLORIDE. [Concomitant]
     Active Substance: COLESEVELAM HYDROCHLORIDE
     Dates: start: 20190502
  10. SIMVASTATIN. [Concomitant]
     Active Substance: SIMVASTATIN
     Dates: start: 20180813
  11. OMEPRAZOLE. [Concomitant]
     Active Substance: OMEPRAZOLE
     Dates: start: 20181101
  12. TRIMETHOPRIM. [Concomitant]
     Active Substance: TRIMETHOPRIM
     Dates: start: 20190322, end: 20190329
  13. DIORALYTE [Concomitant]
     Active Substance: CITRIC ACID MONOHYDRATE\DEXTROSE\POTASSIUM CATION\SODIUM CHLORIDE
     Dosage: SACHET
     Dates: start: 20180813
  14. RAMIPRIL. [Concomitant]
     Active Substance: RAMIPRIL
     Dates: start: 20180813
  15. LOPERAMIDE [Concomitant]
     Active Substance: LOPERAMIDE
     Dosage: TAKE UP TO 10 A DAY
     Dates: start: 20180813
  16. LEVOFLOXACIN. [Suspect]
     Active Substance: LEVOFLOXACIN
     Dates: start: 20190523
  17. CALCIUM CARBONATE. [Concomitant]
     Active Substance: CALCIUM CARBONATE
     Dates: start: 20180813
  18. CODEINE PHOSPHATE [Concomitant]
     Active Substance: CODEINE PHOSPHATE
     Dosage: TAKE ONE OR TWO TABLETS  THREE OR FOUR TIMES A DAY
     Dates: start: 20190415, end: 20190513
  19. MULTIVITAMIN [Concomitant]
     Active Substance: VITAMINS
     Dates: start: 20180813
  20. HYDROXOCOBALAMIN [Concomitant]
     Active Substance: HYDROXOCOBALAMIN
     Dates: start: 20180813

REACTIONS (1)
  - Tendon discomfort [Recovering/Resolving]

NARRATIVE: CASE EVENT DATE: 20190523
